FAERS Safety Report 8534147-5 (Version None)
Quarter: 2012Q3

REPORT INFORMATION
  Report Type: 
  Country: None (occurrence: None)
  Receive Date: 20120724
  Receipt Date: 20120716
  Transmission Date: 20120928
  Serious: Yes (Other)
  Sender: FDA-Public Use
  Company Number: US-ABBOTT-12P-163-0957247-00

PATIENT
  Sex: Female
  Weight: 83.082 kg

DRUGS (2)
  1. METHOTREXATE [Concomitant]
     Indication: RHEUMATOID ARTHRITIS
  2. HUMIRA [Suspect]
     Indication: RHEUMATOID ARTHRITIS
     Dates: start: 20090101

REACTIONS (8)
  - PAIN IN EXTREMITY [None]
  - IMPAIRED HEALING [None]
  - MUSCULAR WEAKNESS [None]
  - WOUND [None]
  - BACK PAIN [None]
  - ABASIA [None]
  - SKIN IRRITATION [None]
  - SPINAL OSTEOARTHRITIS [None]
